FAERS Safety Report 9255842 (Version 1)
Quarter: 2013Q2

REPORT INFORMATION
  Report Type: Spontaneous
  Country: DE (occurrence: DE)
  Receive Date: 20130425
  Receipt Date: 20130425
  Transmission Date: 20140414
  Serious: Yes (Death, Hospitalization)
  Sender: FDA-Public Use
  Company Number: DE-ELI_LILLY_AND_COMPANY-DE201304005711

PATIENT
  Sex: Female

DRUGS (2)
  1. FORSTEO [Suspect]
     Indication: OSTEOPOROSIS
     Dosage: UNK, QD
     Route: 058
     Dates: start: 20120319
  2. OXYGEN [Concomitant]

REACTIONS (3)
  - Circulatory collapse [Fatal]
  - Chronic obstructive pulmonary disease [Not Recovered/Not Resolved]
  - Unresponsive to stimuli [Unknown]
